FAERS Safety Report 9413385 (Version 1)
Quarter: 2013Q3

REPORT INFORMATION
  Report Type: Report from Study
  Country: CA (occurrence: CA)
  Receive Date: 20130722
  Receipt Date: 20130722
  Transmission Date: 20140515
  Serious: Yes (Other)
  Sender: FDA-Public Use
  Company Number: CA-B.I. PHARMACEUTICALS,INC./RIDGEFIELD-2013-CN-01257II

PATIENT
  Age: 65 Year
  Sex: Female
  Weight: 48 kg

DRUGS (4)
  1. PRADAXA [Suspect]
     Indication: ATRIAL FIBRILLATION
     Dosage: 300 MG
     Route: 048
     Dates: start: 201210, end: 20130625
  2. PARIET [Concomitant]
     Indication: GASTROOESOPHAGEAL REFLUX DISEASE
     Dosage: 40 NR
     Route: 048
  3. MICARDIS [Concomitant]
     Indication: HYPERTENSION
     Dosage: 40 NR
     Route: 048
     Dates: start: 201107
  4. ATORVASTATIN [Concomitant]
     Indication: HYPERLIPIDAEMIA
     Dosage: 40 NR
     Route: 048

REACTIONS (3)
  - Dysphagia [Recovered/Resolved]
  - Dyspepsia [Recovered/Resolved]
  - Odynophagia [Recovered/Resolved]
